FAERS Safety Report 9543448 (Version 1)
Quarter: 2013Q3

REPORT INFORMATION
  Report Type: Spontaneous
  Country: FR (occurrence: FR)
  Receive Date: 20130923
  Receipt Date: 20130923
  Transmission Date: 20140515
  Serious: Yes (Other)
  Sender: FDA-Public Use
  Company Number: FR-JNJFOC-20130909317

PATIENT
  Age: 70 Year
  Sex: Female

DRUGS (1)
  1. RISPERDAL CONSTA [Suspect]
     Indication: PRODUCT USED FOR UNKNOWN INDICATION
     Dosage: INITIATED 5 OR 6 MONTHS AGO
     Route: 030
     Dates: start: 2013

REACTIONS (3)
  - Nervous system disorder [Unknown]
  - Sluggishness [Unknown]
  - Logorrhoea [Unknown]
